FAERS Safety Report 10636015 (Version 1)
Quarter: 2014Q4

REPORT INFORMATION
  Report Type: Spontaneous
  Country: AU (occurrence: AU)
  Receive Date: 20141205
  Receipt Date: 20141205
  Transmission Date: 20150529
  Serious: Yes (Other)
  Sender: FDA-Public Use
  Company Number: AU-ASTRAZENECA-2014SE91933

PATIENT
  Age: 69 Year
  Sex: Female
  Weight: 107 kg

DRUGS (10)
  1. METHOTREXATE [Suspect]
     Active Substance: METHOTREXATE
     Route: 065
     Dates: start: 20110721, end: 20141001
  2. FOLIC ACID. [Suspect]
     Active Substance: FOLIC ACID
     Route: 048
  3. CIPRAMIL [Suspect]
     Active Substance: CITALOPRAM HYDROBROMIDE
     Route: 065
  4. VALIUM [Suspect]
     Active Substance: DIAZEPAM
     Route: 065
  5. DIABEX [Concomitant]
     Active Substance: METFORMIN HYDROCHLORIDE
  6. LOSEC [Suspect]
     Active Substance: OMEPRAZOLE
     Route: 048
  7. ATACAND [Concomitant]
     Active Substance: CANDESARTAN CILEXETIL
  8. EPILIM [Concomitant]
     Active Substance: VALPROATE SODIUM
  9. NORSPAN [Concomitant]
     Active Substance: BUPRENORPHINE
  10. NOVOMIX 30 [Concomitant]
     Active Substance: INSULIN ASPART

REACTIONS (8)
  - Rash pustular [Not Recovered/Not Resolved]
  - Pancytopenia [Recovered/Resolved]
  - Acute kidney injury [Not Recovered/Not Resolved]
  - Odynophagia [Not Recovered/Not Resolved]
  - Weight decreased [Not Recovered/Not Resolved]
  - Dysphagia [Unknown]
  - Tubulointerstitial nephritis [Not Recovered/Not Resolved]
  - Mouth ulceration [Not Recovered/Not Resolved]
